FAERS Safety Report 14162723 (Version 2)
Quarter: 2017Q4

REPORT INFORMATION
  Report Type: Spontaneous
  Country: US (occurrence: US)
  Receive Date: 20171106
  Receipt Date: 20171113
  Transmission Date: 20180321
  Serious: Yes (Hospitalization)
  Sender: FDA-Public Use
  Company Number: US-VERTEX PHARMACEUTICALS-2017-006094

PATIENT
  Age: 39 Year
  Sex: Female

DRUGS (3)
  1. KALYDECO [Suspect]
     Active Substance: IVACAFTOR
     Indication: CYSTIC FIBROSIS
     Dosage: 150 MG, BID
     Route: 048
     Dates: start: 20170302
  2. PULMOZYME [Concomitant]
     Active Substance: DORNASE ALFA
     Dosage: UNK
     Route: 055
  3. TOBI [Concomitant]
     Active Substance: TOBRAMYCIN
     Dosage: UNK
     Route: 055

REACTIONS (1)
  - Lung infection [Recovered/Resolved]

NARRATIVE: CASE EVENT DATE: 20170508
